FAERS Safety Report 4519816-6 (Version None)
Quarter: 2004Q4

REPORT INFORMATION
  Report Type: 
  Country: None (occurrence: None)
  Receive Date: 20041207
  Receipt Date: 20041125
  Transmission Date: 20050328
  Serious: Yes (Hospitalization)
  Sender: FDA-Public Use
  Company Number: FR-JNJFOC-20041106537

PATIENT
  Age: 72 Year
  Sex: Female

DRUGS (12)
  1. TOPALGIC [Suspect]
     Route: 049
     Dates: start: 20040921, end: 20040923
  2. DI-ANTALVIC [Suspect]
     Route: 049
  3. DI-ANTALVIC [Suspect]
     Route: 049
  4. NUBAIN [Suspect]
     Route: 042
  5. ENALAPRIL [Interacting]
     Indication: UNEVALUABLE EVENT
  6. FLUDEX [Interacting]
     Indication: UNEVALUABLE EVENT
  7. BI-PROFENID [Interacting]
     Indication: UNEVALUABLE EVENT
  8. ATENOLOL [Concomitant]
  9. ASPIRIN [Concomitant]
     Route: 049
  10. ELISOR [Concomitant]
     Route: 049
  11. FRAGMIN [Concomitant]
  12. FOSAMAX [Concomitant]

REACTIONS (12)
  - DRUG INTERACTION [None]
  - FEMUR FRACTURE [None]
  - HYPOVENTILATION [None]
  - HYPOVOLAEMIA [None]
  - OVERDOSE [None]
  - OXYGEN SATURATION DECREASED [None]
  - POST PROCEDURAL COMPLICATION [None]
  - RENAL FAILURE ACUTE [None]
  - RESPIRATORY ACIDOSIS [None]
  - RESPIRATORY DISTRESS [None]
  - SLEEP APNOEA SYNDROME [None]
  - SOMNOLENCE [None]
